FAERS Safety Report 5151738-2 (Version None)
Quarter: 2006Q4

REPORT INFORMATION
  Report Type: 
  Country: None (occurrence: None)
  Receive Date: 20061107
  Receipt Date: 20061019
  Transmission Date: 20070319
  Serious: Yes (Hospitalization, Other)
  Sender: FDA-Public Use
  Company Number: NO200610004002

PATIENT
  Age: 74 Year
  Sex: Female

DRUGS (4)
  1. ZYPREXA [Suspect]
     Dosage: ORAL
     Route: 048
  2. FLUOXETINE HCL [Concomitant]
  3. MIANSERIN HYDROCHLORIDE [Concomitant]
  4. CITALOPRAM BIOCHEMIE (CITALOPRAM HYDROBROMIDE) [Concomitant]

REACTIONS (17)
  - COMA [None]
  - DEPRESSED LEVEL OF CONSCIOUSNESS [None]
  - DILATATION VENTRICULAR [None]
  - DRUG TOXICITY [None]
  - HEPATIC ENZYME ABNORMAL [None]
  - HYPERTENSION [None]
  - MIOSIS [None]
  - MUSCLE SPASMS [None]
  - MYOCLONUS [None]
  - OVERDOSE [None]
  - PNEUMONIA [None]
  - PULMONARY EMBOLISM [None]
  - PULMONARY HYPERTENSION [None]
  - REFLEXES ABNORMAL [None]
  - TREMOR [None]
  - TROPONIN T INCREASED [None]
  - URINARY INCONTINENCE [None]
